FAERS Safety Report 8295146-4 (Version None)
Quarter: 2012Q2

REPORT INFORMATION
  Report Type: 
  Country: None (occurrence: None)
  Receive Date: 20120418
  Receipt Date: 20120416
  Transmission Date: 20120825
  Serious: Yes (Other)
  Sender: FDA-Public Use
  Company Number: US-PFIZER INC-2012094974

PATIENT
  Sex: Female
  Weight: 109 kg

DRUGS (26)
  1. LIPITOR [Suspect]
     Dosage: 40 MG, DAILY
     Route: 048
  2. FLEXERIL [Concomitant]
     Dosage: 5 MG, AS NEEDED
  3. ZANAFLEX [Concomitant]
     Dosage: 4 MG, 4X/DAY
  4. VITAMIN B COMPLEX CAP [Concomitant]
     Dosage: UNK,DAILY
  5. LOPERAMIDE [Concomitant]
     Dosage: 2 MG, AS NEEDED
  6. CYCLOCORT [Concomitant]
     Dosage: UNK
  7. METOPROLOL TARTRATE [Concomitant]
     Dosage: 50MG ONE AND HALF TABLET 2 TIMES A DAY
  8. PERSANTIN [Concomitant]
     Indication: VASODILATATION
     Dosage: 75 MG, 4X/DAY
  9. LIPITOR [Suspect]
     Indication: BLOOD CHOLESTEROL ABNORMAL
     Dosage: 20 MG, UNK
     Route: 048
     Dates: start: 19930101
  10. ZOCOR [Suspect]
     Indication: BLOOD CHOLESTEROL ABNORMAL
     Dosage: UNK
  11. LOVASTATIN [Concomitant]
     Dosage: 1 DF, 4X/DAY
  12. BUMETANIDE [Concomitant]
     Dosage: 1 MG, DAILY
  13. MIRAPEX [Concomitant]
     Dosage: 0.5 MG 4 TABLETS DAILY
  14. BENADRYL [Concomitant]
     Dosage: 1 DF, 2X/DAY
  15. LIPITOR [Suspect]
     Dosage: 10 MG, 4X/DAY
     Route: 048
  16. COQ-10 [Concomitant]
     Dosage: 10 MG, 4X/DAY
  17. HYDROCHLOROTHIAZIDE [Concomitant]
     Dosage: 50 MG, AS NEEDED
  18. SPIRIVA [Concomitant]
     Dosage: 18 UG, DAILY
  19. LORAZEPAM [Concomitant]
     Dosage: 1MG HALF TABLET THREE TIMES A DAY
  20. GARLIC [Concomitant]
     Dosage: ONE CAPSULE DAILY
  21. DIOVAN HCT [Concomitant]
     Dosage: 25/320 MG,DAILY
  22. ACETYLSALICYLIC ACID [Concomitant]
     Dosage: 325 MG, DAILY
  23. GLYBURIDE [Concomitant]
     Dosage: 5MG 4 TABLETS DAILY
  24. SIMVASTATIN [Suspect]
     Indication: BLOOD CHOLESTEROL ABNORMAL
     Dosage: UNK
  25. ATROVENT [Concomitant]
     Dosage: 0.03 %, 2X/DAY
     Route: 045
  26. JANUVIA [Concomitant]
     Dosage: 100 MG, DAILY

REACTIONS (7)
  - BRAIN STEM STROKE [None]
  - MUSCLE ATROPHY [None]
  - HEADACHE [None]
  - AMNESIA [None]
  - MUSCULOSKELETAL STIFFNESS [None]
  - ABDOMINAL DISCOMFORT [None]
  - MUSCLE SPASMS [None]
